FAERS Safety Report 10400984 (Version 1)
Quarter: 2014Q1

REPORT INFORMATION
  Report Type: Spontaneous
  Country: US (occurrence: None)
  Receive Date: 20130815
  Receipt Date: 20130815
  Transmission Date: 20141002
  Serious: Yes (Life-Threatening, Hospitalization, Other)
  Sender: FDA-Public Use
  Company Number: ADR-2013-00224

PATIENT
  Sex: Female

DRUGS (2)
  1. BACLOFEN [Suspect]
  2. CLONIDINE, MS (40 MG/ML), INTRATHECAL [Concomitant]

REACTIONS (3)
  - Incorrect route of drug administration [None]
  - Respiratory arrest [None]
  - Cardio-respiratory arrest [None]
